FAERS Safety Report 21070883 (Version 2)
Quarter: 2023Q1

REPORT INFORMATION
  Report Type: Spontaneous
  Country: US (occurrence: US)
  Receive Date: 20220712
  Receipt Date: 20230216
  Transmission Date: 20230417
  Serious: No
  Sender: FDA-Public Use
  Company Number: US-PFIZER INC-202200944325

PATIENT
  Age: 66 Year
  Sex: Female
  Weight: 83.9 kg

DRUGS (7)
  1. PAXLOVID [Suspect]
     Active Substance: NIRMATRELVIR\RITONAVIR
     Indication: COVID-19 treatment
     Dosage: UNK
     Dates: start: 20220625, end: 20220630
  2. ROPINIROLE [Concomitant]
     Active Substance: ROPINIROLE
     Dosage: 2.5
     Dates: start: 201301
  3. LOSARTAN POT HCTZ [Concomitant]
     Dosage: (100 - 12.5)
     Dates: start: 202103
  4. AUBAGIO [Concomitant]
     Active Substance: TERIFLUNOMIDE
     Dosage: 14 MG
     Dates: start: 201102
  5. TELMISARTAN [Concomitant]
     Active Substance: TELMISARTAN
     Dosage: 80
     Dates: start: 202201
  6. VITAMIN D3 [Concomitant]
     Active Substance: CHOLECALCIFEROL
     Dosage: 5000
  7. PEPCID [Concomitant]
     Active Substance: FAMOTIDINE
     Dosage: 80 MG
     Dates: start: 20220625

REACTIONS (4)
  - Rhinorrhoea [Recovered/Resolved]
  - Cough [Recovering/Resolving]
  - Asthenia [Not Recovered/Not Resolved]
  - Post-acute COVID-19 syndrome [Unknown]

NARRATIVE: CASE EVENT DATE: 20220701
